FAERS Safety Report 9098542 (Version 4)
Quarter: 2013Q3

REPORT INFORMATION
  Report Type: Spontaneous
  Country: CA (occurrence: CA)
  Receive Date: 20130213
  Receipt Date: 20130805
  Transmission Date: 20140515
  Serious: Yes (Other)
  Sender: FDA-Public Use
  Company Number: CA-ELI_LILLY_AND_COMPANY-CA201302001755

PATIENT
  Age: 23 Year
  Sex: Female

DRUGS (2)
  1. STRATTERA [Suspect]
     Indication: ATTENTION DEFICIT/HYPERACTIVITY DISORDER
     Dosage: 40 MG, QD
     Route: 048
     Dates: start: 20130114, end: 201304
  2. DEPO-PROVERA [Concomitant]

REACTIONS (3)
  - Atrioventricular block [Recovering/Resolving]
  - Ventricular extrasystoles [Recovering/Resolving]
  - Dyspnoea [Recovering/Resolving]
